FAERS Safety Report 23445177 (Version 5)
Quarter: 2024Q1

REPORT INFORMATION
  Report Type: Spontaneous
  Country: CA (occurrence: CA)
  Receive Date: 20240125
  Receipt Date: 20240213
  Transmission Date: 20240409
  Serious: Yes (Death, Hospitalization, Other)
  Sender: FDA-Public Use
  Company Number: CA-ABBVIE-5590848

PATIENT
  Age: 39 Year
  Sex: Male

DRUGS (1)
  1. EPKINLY [Suspect]
     Active Substance: EPCORITAMAB-BYSP
     Indication: Diffuse large B-cell lymphoma
     Dosage: 48 MG, EVERY 1 WEEKS
     Route: 058
     Dates: start: 20231228, end: 20240125

REACTIONS (26)
  - Death [Fatal]
  - Enterovirus infection [Not Recovered/Not Resolved]
  - Pancytopenia [Not Recovered/Not Resolved]
  - Hepatosplenomegaly [Not Recovered/Not Resolved]
  - Unevaluable event [Unknown]
  - Altered state of consciousness [Unknown]
  - Hospitalisation [Unknown]
  - Cough [Not Recovered/Not Resolved]
  - Jaundice [Not Recovered/Not Resolved]
  - Hyperhidrosis [Not Recovered/Not Resolved]
  - Rhinovirus infection [Not Recovered/Not Resolved]
  - Asthenia [Not Recovered/Not Resolved]
  - Fatigue [Not Recovered/Not Resolved]
  - Pyrexia [Not Recovered/Not Resolved]
  - Abdominal pain [Not Recovered/Not Resolved]
  - Cytokine release syndrome [Unknown]
  - Vein rupture [Unknown]
  - Stress [Unknown]
  - Asthenia [Unknown]
  - Epistaxis [Not Recovered/Not Resolved]
  - Emotional distress [Unknown]
  - Dehydration [Unknown]
  - Contusion [Not Recovered/Not Resolved]
  - Bedridden [Unknown]
  - Defaecation urgency [Unknown]
  - Arthralgia [Not Recovered/Not Resolved]

NARRATIVE: CASE EVENT DATE: 20240101
